FAERS Safety Report 17445745 (Version 1)
Quarter: 2020Q1

REPORT INFORMATION
  Report Type: Spontaneous
  Country: CN (occurrence: CN)
  Receive Date: 20200221
  Receipt Date: 20200221
  Transmission Date: 20200409
  Serious: Yes (Hospitalization, Other)
  Sender: FDA-Public Use
  Company Number: CN-PFIZER INC-2020076270

PATIENT
  Age: 26 Year
  Sex: Male
  Weight: 75 kg

DRUGS (2)
  1. ZITHROMAX [Suspect]
     Active Substance: AZITHROMYCIN DIHYDRATE
     Indication: PYREXIA
     Dosage: 0.5 G, 1X/DAY
     Route: 048
     Dates: start: 20200125, end: 20200126
  2. KAI DI XIN [Suspect]
     Active Substance: CEFUROXIME SODIUM
     Indication: PYREXIA
     Dosage: 1.5 G, 3X/DAY
     Route: 041
     Dates: start: 20200124, end: 20200126

REACTIONS (6)
  - Rash erythematous [Recovering/Resolving]
  - Lip erosion [Recovering/Resolving]
  - Pruritus [Recovering/Resolving]
  - Erythema multiforme [Recovering/Resolving]
  - Genital erosion [Recovering/Resolving]
  - Rash vesicular [Recovering/Resolving]

NARRATIVE: CASE EVENT DATE: 20200126
